FAERS Safety Report 7108587-5 (Version None)
Quarter: 2010Q4

REPORT INFORMATION
  Report Type: 
  Country: None (occurrence: None)
  Receive Date: 20101117
  Receipt Date: 20101103
  Transmission Date: 20110411
  Serious: Yes (Life-Threatening, Hospitalization, Disabling)
  Sender: FDA-Public Use
  Company Number: FI-ROCHE-738710

PATIENT
  Sex: Female

DRUGS (9)
  1. AVASTIN [Suspect]
     Indication: COLON CANCER
     Dosage: FORM: INFUSION
     Route: 042
     Dates: start: 20091217, end: 20100924
  2. XELODA [Suspect]
     Indication: COLON CANCER
     Dosage: FREQUENCY AS REPORTED: TWICE PER DAY FOR DAYS 1-14.
     Route: 048
     Dates: start: 20090917, end: 20100924
  3. OXALIPLATIN [Suspect]
     Indication: COLON CANCER
     Dosage: FORM: INFUSION
     Route: 042
     Dates: start: 20091217, end: 20100924
  4. PANADOL [Concomitant]
     Dosage: FREQUNCY: WHEN NEEDED
  5. TRAMADOL HCL [Concomitant]
     Dosage: FREQUENCY: WHEN NEEDED
  6. GRANISETRON HCL [Concomitant]
     Dosage: FREQUENCY: WHEN NEEDED
  7. PRIMPERAN [Concomitant]
     Dosage: FREQUENCY: WHEN NEEDED
  8. ZOPINOX [Concomitant]
     Dosage: FREQUENCY: WHEN NEEDED
  9. IMOVANE [Concomitant]
     Dosage: FREQUENCY: WHEN NEEDED

REACTIONS (1)
  - PROGRESSIVE MULTIFOCAL LEUKOENCEPHALOPATHY [None]
